FAERS Safety Report 5589268-6 (Version None)
Quarter: 2008Q1

REPORT INFORMATION
  Report Type: 
  Country: None (occurrence: None)
  Receive Date: 20080114
  Receipt Date: 20080102
  Transmission Date: 20080703
  Serious: Yes (Other)
  Sender: FDA-Public Use
  Company Number: PHBS2008BR00465

PATIENT
  Age: 56 Year
  Sex: Male

DRUGS (1)
  1. VOLTAREN [Suspect]
     Indication: SCOLIOSIS
     Route: 030
     Dates: start: 20061201

REACTIONS (5)
  - INJECTION SITE NECROSIS [None]
  - INJECTION SITE RASH [None]
  - MEDICATION ERROR [None]
  - SCAB [None]
  - WOUND [None]
